FAERS Safety Report 4653724-5 (Version None)
Quarter: 2005Q2

REPORT INFORMATION
  Report Type: 
  Country: None (occurrence: None)
  Receive Date: 20050504
  Receipt Date: 20050421
  Transmission Date: 20051028
  Serious: Yes (Hospitalization, Other)
  Sender: FDA-Public Use
  Company Number: KII-2005-0016206

PATIENT
  Age: 37 Year
  Sex: Female

DRUGS (7)
  1. OXYCONTIN [Suspect]
     Dosage: ORAL
     Route: 048
  2. ACETAMINOPHEN AND OXYCODONE HCL [Suspect]
     Dosage: ORAL
     Route: 048
  3. ASPIRIN WITH CARISOPRODOL () [Suspect]
     Dosage: ORAL
     Route: 048
  4. DIPHENHYDRAMINE HCL [Suspect]
     Dosage: ORAL
     Route: 048
  5. ANTIPSYCHOTICS() [Suspect]
     Dosage: ORAL
     Route: 048
  6. ALCOHOL (ETHANOL) [Suspect]
  7. MARIJUANA (CANNABIS) [Suspect]

REACTIONS (12)
  - ALCOHOL USE [None]
  - APNOEA [None]
  - BLOOD GLUCOSE INCREASED [None]
  - BLOOD PH DECREASED [None]
  - BLOOD PRESSURE DECREASED [None]
  - COMA [None]
  - DRUG ABUSER [None]
  - ELECTROCARDIOGRAM QRS COMPLEX PROLONGED [None]
  - ELECTROCARDIOGRAM QT CORRECTED INTERVAL PROLONGED [None]
  - LOSS OF CONSCIOUSNESS [None]
  - MULTIPLE DRUG OVERDOSE [None]
  - SOMNOLENCE [None]
